FAERS Safety Report 7986469-4 (Version None)
Quarter: 2011Q4

REPORT INFORMATION
  Report Type: 
  Country: None (occurrence: None)
  Receive Date: 20111216
  Receipt Date: 20110127
  Transmission Date: 20120403
  Serious: No
  Sender: FDA-Public Use
  Company Number: US-BRISTOL-MYERS SQUIBB COMPANY-15513831

PATIENT
  Age: 53 Year
  Sex: Female

DRUGS (5)
  1. CITRICAL [Concomitant]
  2. ABILIFY [Suspect]
     Indication: MAJOR DEPRESSION
     Dosage: REDUCED TO 1 MG
  3. CLONAZEPAM [Concomitant]
  4. CRESTOR [Concomitant]
  5. PRISTIQ [Concomitant]

REACTIONS (1)
  - WEIGHT INCREASED [None]
